FAERS Safety Report 8588455-2 (Version None)
Quarter: 2012Q3

REPORT INFORMATION
  Report Type: 
  Country: None (occurrence: None)
  Receive Date: 20120813
  Receipt Date: 20120802
  Transmission Date: 20120928
  Serious: Yes (Hospitalization)
  Sender: FDA-Public Use
  Company Number: US-JNJFOC-20120802931

PATIENT
  Sex: Female
  Weight: 77.11 kg

DRUGS (6)
  1. REMICADE [Suspect]
     Indication: RHEUMATOID ARTHRITIS
     Dosage: DOSE WAS REPORTED AS 40 (UNITS UNSPECIFIED)
     Route: 042
     Dates: start: 20111201, end: 20120401
  2. PRADAXA [Concomitant]
     Indication: CEREBROVASCULAR ACCIDENT
     Route: 048
     Dates: end: 20120201
  3. XARELTO [Concomitant]
     Indication: CEREBROVASCULAR ACCIDENT
     Route: 048
     Dates: start: 20120222
  4. ATENOLOL [Concomitant]
     Indication: CARDIAC DISORDER
     Route: 065
     Dates: start: 20080101
  5. REMICADE [Suspect]
     Dosage: DOSE WAS REPORTED AS 20 (UNITS UNSPECIFIED)
     Route: 042
     Dates: start: 20110615, end: 20111101
  6. ACETAMINOPHEN [Concomitant]
     Indication: PAIN
     Route: 065

REACTIONS (8)
  - ARTHRALGIA [None]
  - TRANSIENT ISCHAEMIC ATTACK [None]
  - CLOSTRIDIAL INFECTION [None]
  - SINUSITIS [None]
  - CYSTITIS [None]
  - SEPSIS [None]
  - DIARRHOEA [None]
  - INFECTION [None]
